FAERS Safety Report 6489020-3 (Version None)
Quarter: 2009Q4

REPORT INFORMATION
  Report Type: 
  Country: None (occurrence: None)
  Receive Date: 20091210
  Receipt Date: 20090921
  Transmission Date: 20100525
  Serious: No
  Sender: FDA-Public Use
  Company Number: US-AMGEN-KDL365631

PATIENT
  Sex: Female
  Weight: 59 kg

DRUGS (2)
  1. ENBREL [Suspect]
     Indication: JUVENILE ARTHRITIS
     Dates: end: 20090815
  2. HUMIRA [Suspect]
     Indication: JUVENILE ARTHRITIS
     Route: 058
     Dates: start: 20090827

REACTIONS (4)
  - ALOPECIA [None]
  - DRUG INEFFECTIVE [None]
  - NAUSEA [None]
  - VOMITING [None]
